FAERS Safety Report 10103911 (Version 2)
Quarter: 2014Q2

REPORT INFORMATION
  Report Type: Other
  Country: US (occurrence: US)
  Receive Date: 20140424
  Receipt Date: 20140612
  Transmission Date: 20141212
  Serious: Yes (Death, Hospitalization, Other)
  Sender: FDA-Public Use
  Company Number: US-GSKPPD-2014GSK001417

PATIENT
  Age: 52 Year
  Sex: Female

DRUGS (2)
  1. AVANDIA [Suspect]
     Indication: DIABETES MELLITUS
     Route: 048
     Dates: start: 2005, end: 2007
  2. CLONIDINE [Concomitant]

REACTIONS (4)
  - Cerebrovascular accident [None]
  - Hypertensive crisis [Recovered/Resolved]
  - Cardio-respiratory arrest [Fatal]
  - Renal failure acute [Recovered/Resolved]
